FAERS Safety Report 4576084-7 (Version None)
Quarter: 2005Q1

REPORT INFORMATION
  Report Type: 
  Country: None (occurrence: None)
  Receive Date: 20050201
  Receipt Date: 20050201
  Transmission Date: 20050727
  Serious: Yes (Other)
  Sender: FDA-Public Use
  Company Number: None

PATIENT
  Age: 73 Year
  Sex: Female
  Weight: 72.5755 kg

DRUGS (6)
  1. BEXTRA [Suspect]
     Indication: BACK PAIN
     Dosage: 20 MG DAILY BY MOUTH
     Route: 048
     Dates: end: 20041101
  2. BEXTRA [Suspect]
     Indication: NECK PAIN
     Dosage: 20 MG DAILY BY MOUTH
     Route: 048
     Dates: end: 20041101
  3. BEXTRA [Suspect]
     Indication: ROAD TRAFFIC ACCIDENT
     Dosage: 20 MG DAILY BY MOUTH
     Route: 048
     Dates: end: 20041101
  4. CLONAZEPAM [Concomitant]
  5. TUMS EXTRA STRENGTH [Concomitant]
  6. ALEVE [Concomitant]

REACTIONS (1)
  - DYSPNOEA EXERTIONAL [None]
